FAERS Safety Report 20220720 (Version 2)
Quarter: 2022Q2

REPORT INFORMATION
  Report Type: Spontaneous
  Country: US (occurrence: US)
  Receive Date: 20211223
  Receipt Date: 20220511
  Transmission Date: 20220720
  Serious: Yes (Other)
  Sender: FDA-Public Use
  Company Number: US-GILEAD-2021-0561843

PATIENT
  Sex: Male
  Weight: 117.93 kg

DRUGS (44)
  1. ATRIPLA [Suspect]
     Active Substance: EFAVIRENZ\EMTRICITABINE\TENOFOVIR DISOPROXIL FUMARATE
     Indication: HIV infection
     Dosage: UNK
     Route: 048
     Dates: start: 200911, end: 201710
  2. DESCOVY [Concomitant]
     Active Substance: EMTRICITABINE\TENOFOVIR ALAFENAMIDE FUMARATE
  3. TIVICAY [Concomitant]
     Active Substance: DOLUTEGRAVIR SODIUM
  4. QUETIAPINE [Concomitant]
     Active Substance: QUETIAPINE
  5. QVAR REDIHALER [Concomitant]
     Active Substance: BECLOMETHASONE DIPROPIONATE
  6. CYCLOBENZAPRINE [Concomitant]
     Active Substance: CYCLOBENZAPRINE
  7. BUPROPION [Concomitant]
     Active Substance: BUPROPION
  8. DULOXETINE [Concomitant]
     Active Substance: DULOXETINE
  9. LABETALOL [Concomitant]
     Active Substance: LABETALOL\LABETALOL HYDROCHLORIDE
  10. AMLODIPINE [Concomitant]
     Active Substance: AMLODIPINE BESYLATE
  11. ATORVASTATIN [Concomitant]
     Active Substance: ATORVASTATIN
  12. FUROSEMIDE [Concomitant]
     Active Substance: FUROSEMIDE
  13. VENTOLIN HFA [Concomitant]
     Active Substance: ALBUTEROL SULFATE
  14. PAROXETINE [Concomitant]
     Active Substance: PAROXETINE
  15. BUPRENORPHINE\NALOXONE [Concomitant]
     Active Substance: BUPRENORPHINE\NALOXONE
  16. TRAMADOL [Concomitant]
     Active Substance: TRAMADOL
  17. GABAPENTIN [Concomitant]
     Active Substance: GABAPENTIN
  18. ALBUTEROL SULFATE [Concomitant]
     Active Substance: ALBUTEROL SULFATE
  19. FLOVENT HFA [Concomitant]
     Active Substance: FLUTICASONE PROPIONATE
  20. CHANTIX [Concomitant]
     Active Substance: VARENICLINE TARTRATE
  21. STIOLTO RESPIMAT [Concomitant]
     Active Substance: OLODATEROL HYDROCHLORIDE\TIOTROPIUM BROMIDE MONOHYDRATE
  22. ONDANSETRON [Concomitant]
     Active Substance: ONDANSETRON
  23. LINZESS [Concomitant]
     Active Substance: LINACLOTIDE
  24. POLYETHYLENE GLYCOL ELECTROLYTE POWDER(I) [Concomitant]
  25. CEFUROXIME [Concomitant]
     Active Substance: CEFUROXIME
  26. CIPROFLOXACIN [Concomitant]
     Active Substance: CIPROFLOXACIN
  27. PROAIR HFA [Concomitant]
     Active Substance: ALBUTEROL SULFATE
  28. CEPHALEXIN [Concomitant]
     Active Substance: CEPHALEXIN
  29. FLUTICASONE [Concomitant]
     Active Substance: FLUTICASONE
  30. KETOCONAZOLE [Concomitant]
     Active Substance: KETOCONAZOLE
  31. LIDOCAINE [Concomitant]
     Active Substance: LIDOCAINE
  32. HYDROXYZINE PAMOATE [Concomitant]
     Active Substance: HYDROXYZINE PAMOATE
  33. NICOTROL [Concomitant]
     Active Substance: NICOTINE
  34. AMOXICILLIN [Concomitant]
     Active Substance: AMOXICILLIN
  35. PREDNISONE [Concomitant]
     Active Substance: PREDNISONE
  36. LACTULOSE [Concomitant]
     Active Substance: LACTULOSE
  37. NYSTATIN [Concomitant]
     Active Substance: NYSTATIN
  38. SULFAMERAZINE;TRIMETHOPRIM [Concomitant]
  39. MORPHINE SULFATE [Concomitant]
     Active Substance: MORPHINE SULFATE
  40. HYDRALAZINE [Concomitant]
     Active Substance: HYDRALAZINE HYDROCHLORIDE
  41. SODIUM BICARBONATE [Concomitant]
     Active Substance: SODIUM BICARBONATE
  42. DISULFIRAM [Concomitant]
     Active Substance: DISULFIRAM
  43. ESCITALOPRAM [Concomitant]
     Active Substance: ESCITALOPRAM OXALATE
  44. PROCHLORPERAZINE [Concomitant]
     Active Substance: PROCHLORPERAZINE

REACTIONS (8)
  - Chronic kidney disease [Not Recovered/Not Resolved]
  - Acute kidney injury [Not Recovered/Not Resolved]
  - Pain [Not Recovered/Not Resolved]
  - Emotional distress [Not Recovered/Not Resolved]
  - Anxiety [Not Recovered/Not Resolved]
  - Anhedonia [Not Recovered/Not Resolved]
  - Gait inability [Not Recovered/Not Resolved]
  - Depression [Not Recovered/Not Resolved]

NARRATIVE: CASE EVENT DATE: 20170101
